FAERS Safety Report 7119142-5 (Version None)
Quarter: 2010Q4

REPORT INFORMATION
  Report Type: 
  Country: None (occurrence: None)
  Receive Date: 20101123
  Receipt Date: 20100324
  Transmission Date: 20110411
  Serious: No
  Sender: FDA-Public Use
  Company Number: US-MYLANLABS-2010S1005153

PATIENT
  Sex: Male

DRUGS (7)
  1. AMLODIPINE BESYLATE [Suspect]
     Indication: BLOOD PRESSURE INCREASED
     Route: 048
     Dates: start: 20080101, end: 20090101
  2. CHONDROITIN /01060701/ [Concomitant]
  3. DIURETIC [Concomitant]
  4. POTASSIUM CHLORIDE [Concomitant]
  5. OXYCODONE HCL [Concomitant]
  6. CORTISONE [Concomitant]
  7. LYRICA [Concomitant]

REACTIONS (2)
  - ARTHRALGIA [None]
  - FIBROMYALGIA [None]
